FAERS Safety Report 14046277 (Version 1)
Quarter: 2017Q4

REPORT INFORMATION
  Report Type: Spontaneous
  Country: GB (occurrence: GB)
  Receive Date: 20171005
  Receipt Date: 20171005
  Transmission Date: 20180321
  Serious: Yes (Other)
  Sender: FDA-Public Use
  Company Number: GB-AUROBINDO-AUR-APL-2017-41421

PATIENT
  Age: 63 Year
  Sex: Male
  Weight: 83.91 kg

DRUGS (1)
  1. SIMVASTATIN. [Suspect]
     Active Substance: SIMVASTATIN
     Indication: HYPERCHOLESTEROLAEMIA
     Dosage: 40 MG, ONCE A DAY
     Route: 048
     Dates: start: 20170130, end: 20170826

REACTIONS (2)
  - Abnormal weight gain [Recovering/Resolving]
  - Abdominal distension [Recovering/Resolving]
